FAERS Safety Report 11713035 (Version 1)
Quarter: 2015Q4

REPORT INFORMATION
  Report Type: Spontaneous
  Country: US (occurrence: US)
  Receive Date: 20151109
  Receipt Date: 20151109
  Transmission Date: 20160304
  Serious: No
  Sender: FDA-Public Use
  Company Number: US-ASTRAZENECA-2015SF05585

PATIENT
  Age: 246 Day
  Sex: Male
  Weight: 7.1 kg

DRUGS (4)
  1. OXYGEN. [Concomitant]
     Active Substance: OXYGEN
  2. VITAMINS NOS [Concomitant]
     Active Substance: VITAMINS
  3. BENADRYL [Concomitant]
     Active Substance: DIPHENHYDRAMINE HYDROCHLORIDE
  4. SYNAGIS [Suspect]
     Active Substance: PALIVIZUMAB
     Indication: DYSPLASIA
     Route: 030
     Dates: start: 20150929, end: 20150929

REACTIONS (2)
  - Off label use [Unknown]
  - Rash [Recovered/Resolved]

NARRATIVE: CASE EVENT DATE: 20150929
